FAERS Safety Report 14117787 (Version 3)
Quarter: 2017Q4

REPORT INFORMATION
  Report Type: Report from Study
  Country: None (occurrence: TR)
  Receive Date: 20171023
  Receipt Date: 20171114
  Transmission Date: 20180321
  Serious: Yes (Hospitalization)
  Sender: FDA-Public Use
  Company Number: TR-ABBVIE-17K-161-2126329-00

PATIENT
  Age: 66 Year
  Sex: Female
  Weight: 98 kg

DRUGS (7)
  1. DUODOPA [Suspect]
     Active Substance: CARBIDOPA\LEVODOPA
     Indication: PARKINSON^S DISEASE
     Dosage: MORNING DOSE: 6.00 ML??CONTINUOUS DOSE: 2.40 ML??EXTRA DOSE: 0.50 ML
     Route: 050
     Dates: start: 20170927
  2. KARUM [Concomitant]
     Indication: CARDIAC DISORDER
     Route: 048
     Dates: start: 2014
  3. LASIX [Concomitant]
     Active Substance: FUROSEMIDE
     Indication: DIURETIC THERAPY
     Dates: start: 2015
  4. BETANORM [Concomitant]
     Indication: DIABETES MELLITUS
     Dosage: 1X2
     Route: 048
     Dates: start: 2002
  5. VASOXEN [Concomitant]
     Indication: CARDIAC DISORDER
     Route: 048
     Dates: start: 1997
  6. AYRA PLUS [Concomitant]
     Active Substance: CANDESARTAN CILEXETIL\HYDROCHLOROTHIAZIDE
     Indication: HYPERTENSION
     Dosage: 16/ 12.5 MG
     Route: 048
     Dates: start: 2016
  7. GLIFOR [Concomitant]
     Active Substance: METFORMIN HYDROCHLORIDE
     Indication: DIABETES MELLITUS
     Route: 048
     Dates: start: 2010

REACTIONS (4)
  - Pyrexia [Recovered/Resolved]
  - Intra-abdominal fluid collection [Unknown]
  - Bacterial infection [Recovered/Resolved]
  - Stoma site discharge [Recovered/Resolved]

NARRATIVE: CASE EVENT DATE: 20171008
